FAERS Safety Report 7889533-3 (Version None)
Quarter: 2011Q4

REPORT INFORMATION
  Report Type: 
  Country: None (occurrence: None)
  Receive Date: 20111103
  Receipt Date: 20100920
  Transmission Date: 20120403
  Serious: No
  Sender: FDA-Public Use
  Company Number: US-BRISTOL-MYERS SQUIBB COMPANY-15296346

PATIENT
  Age: 49 Year
  Sex: Female

DRUGS (1)
  1. KENALOG-40 [Suspect]
     Dates: start: 20090612

REACTIONS (2)
  - INJECTION SITE DISCOLOURATION [None]
  - INJECTION SITE ATROPHY [None]
